FAERS Safety Report 7405746-9 (Version None)
Quarter: 2011Q2

REPORT INFORMATION
  Report Type: 
  Country: None (occurrence: None)
  Receive Date: 20110411
  Receipt Date: 20110406
  Transmission Date: 20111010
  Serious: Yes (Life-Threatening, Hospitalization, Other)
  Sender: FDA-Public Use
  Company Number: CH-PFIZER INC-2011075727

PATIENT
  Age: 33 Year
  Sex: Female
  Weight: 95 kg

DRUGS (14)
  1. SEROQUEL [Suspect]
     Dosage: 1400 MG, 1X/DAY
     Route: 048
  2. LISINOPRIL [Suspect]
     Dosage: 350 MG, SINGLE
     Route: 048
     Dates: start: 20110214, end: 20110214
  3. KCL-RETARD [Suspect]
     Dosage: 470 MMOL, SINGLE
     Route: 048
     Dates: start: 20110214, end: 20110214
  4. SORTIS [Suspect]
     Dosage: 8 G, SINGLE
     Route: 048
     Dates: start: 20110214, end: 20110214
  5. TEMESTA [Suspect]
     Dosage: 2.5 MG, 3X/DAY
     Route: 048
  6. SORTIS [Suspect]
     Dosage: UNK
     Route: 048
  7. TEMESTA [Suspect]
     Dosage: 50 MG, SINGLE
     Route: 048
     Dates: start: 20110214, end: 20110214
  8. SEROQUEL [Suspect]
     Dosage: 52 G, SINGLE
     Route: 048
     Dates: start: 20110214, end: 20110214
  9. CIPRALEX [Suspect]
     Dosage: 40 MG, 1X/DAY
     Route: 048
  10. DALMADORM ^ROCHE^ [Suspect]
     Dosage: 750 MG, SINGLE
     Route: 048
     Dates: start: 20110214, end: 20110214
  11. DALMADORM ^ROCHE^ [Suspect]
     Dosage: 30 MG, 1X/DAY
     Route: 048
  12. LISINOPRIL [Suspect]
     Route: 048
  13. CIPRALEX [Suspect]
     Dosage: 1.4 G, SINGLE
     Route: 048
     Dates: start: 20110214, end: 20110214
  14. KCL-RETARD [Suspect]
     Dosage: UNK
     Route: 048

REACTIONS (13)
  - LOSS OF CONSCIOUSNESS [None]
  - TACHYCARDIA [None]
  - MYDRIASIS [None]
  - HYPERTHERMIA [None]
  - METABOLIC ACIDOSIS [None]
  - HYPOTENSION [None]
  - C-REACTIVE PROTEIN INCREASED [None]
  - VOMITING [None]
  - HYPERKALAEMIA [None]
  - ASPARTATE AMINOTRANSFERASE INCREASED [None]
  - DIABETIC COMPLICATION [None]
  - INTENTIONAL OVERDOSE [None]
  - RHABDOMYOLYSIS [None]
